FAERS Safety Report 9780991 (Version 2)
Quarter: 2013Q4

REPORT INFORMATION
  Report Type: Spontaneous
  Country: DE (occurrence: DE)
  Receive Date: 20131224
  Receipt Date: 20131231
  Transmission Date: 20140711
  Serious: Yes (Other)
  Sender: FDA-Public Use
  Company Number: DE-JNJFOC-20131214790

PATIENT
  Age: 73 Year
  Sex: Male
  Weight: 80 kg

DRUGS (6)
  1. XARELTO [Suspect]
     Indication: CEREBROVASCULAR ACCIDENT PROPHYLAXIS
     Route: 048
  2. XARELTO [Suspect]
     Indication: ATRIAL FIBRILLATION
     Route: 048
  3. METOPROLOL [Concomitant]
     Route: 065
  4. AMLODIPINE [Concomitant]
     Route: 065
  5. FUROSEMID [Concomitant]
     Route: 065
  6. METFORMIN [Concomitant]
     Route: 065

REACTIONS (4)
  - Myositis [Recovering/Resolving]
  - Drug intolerance [Unknown]
  - Pruritus [Unknown]
  - Oedema peripheral [Recovering/Resolving]
